FAERS Safety Report 15297679 (Version 1)
Quarter: 2018Q3

REPORT INFORMATION
  Report Type: Spontaneous
  Country: JP (occurrence: JP)
  Receive Date: 20180820
  Receipt Date: 20180820
  Transmission Date: 20181010
  Serious: Yes (Life-Threatening)
  Sender: FDA-Public Use
  Company Number: JP-SHIONOGI, INC.-2018000847

PATIENT
  Age: 70 Year
  Sex: Male
  Weight: 65 kg

DRUGS (9)
  1. TAKECAB [Concomitant]
     Active Substance: VONOPRAZAN FUMURATE
     Indication: GASTRIC ULCER
     Dosage: 20 MG, QD
     Route: 048
     Dates: start: 20180222, end: 20180505
  2. LIFOROS [Concomitant]
     Active Substance: LACTULOSE
     Indication: HEPATIC CIRRHOSIS
     Route: 065
     Dates: start: 20180314, end: 20180505
  3. MULPLETA [Suspect]
     Active Substance: LUSUTROMBOPAG
     Indication: THROMBOCYTOPENIA
     Dosage: 3 MG, QD
     Route: 048
     Dates: start: 20180502, end: 20180505
  4. AMINOLEBAN EN [Concomitant]
     Active Substance: UNSPECIFIED INGREDIENT
     Indication: HEPATIC CIRRHOSIS
     Dosage: 50 G, QD
     Route: 048
     Dates: start: 20180502, end: 20180505
  5. SUCRALFATE HYDRATE [Concomitant]
     Indication: VARICES OESOPHAGEAL
  6. SUCRALFATE HYDRATE [Concomitant]
     Indication: HEPATITIS C
  7. AMINOLEBAN EN [Concomitant]
     Active Substance: UNSPECIFIED INGREDIENT
     Indication: HEPATITIS C
  8. SUCRALFATE HYDRATE [Concomitant]
     Indication: HEPATIC CIRRHOSIS
     Dosage: 10 ML, QID
     Route: 048
     Dates: start: 20180221, end: 20180505
  9. LIFOROS [Concomitant]
     Active Substance: LACTULOSE
     Indication: HEPATITIS C

REACTIONS (2)
  - Hepatic encephalopathy [Recovered/Resolved with Sequelae]
  - Hyperammonaemia [Recovered/Resolved with Sequelae]

NARRATIVE: CASE EVENT DATE: 20180506
